FAERS Safety Report 9901007 (Version 1)
Quarter: 2014Q1

REPORT INFORMATION
  Report Type: Other
  Country: GB (occurrence: GB)
  Receive Date: 20140217
  Receipt Date: 20140217
  Transmission Date: 20141002
  Serious: Yes (Other)
  Sender: FDA-Public Use
  Company Number: GB-PERRIGO-14GB001534

PATIENT
  Sex: Male
  Weight: 76.2 kg

DRUGS (3)
  1. LORATADINE 16028/0080 10 MG [Suspect]
     Indication: SEASONAL ALLERGY
     Dosage: 10 MG, UNK
     Route: 048
     Dates: start: 20130710, end: 20130714
  2. LORATADINE 16028/0080 10 MG [Suspect]
     Indication: ADVERSE DRUG REACTION
  3. DOXAZOSIN [Concomitant]
     Indication: PRODUCT USED FOR UNKNOWN INDICATION
     Dosage: UNK
     Route: 065

REACTIONS (1)
  - Abdominal pain upper [Recovered/Resolved]
